FAERS Safety Report 13740031 (Version 1)
Quarter: 2017Q3

REPORT INFORMATION
  Report Type: Spontaneous
  Country: US (occurrence: US)
  Receive Date: 20170710
  Receipt Date: 20170710
  Transmission Date: 20171127
  Serious: Yes (Other)
  Sender: FDA-Public Use
  Company Number: None

PATIENT
  Age: 39 Year
  Sex: Male
  Weight: 99 kg

DRUGS (1)
  1. SUBOXONE [Suspect]
     Active Substance: BUPRENORPHINE HYDROCHLORIDE\NALOXONE HYDROCHLORIDE
     Indication: DRUG DEPENDENCE
     Dosage: OTHER DOSE:TOT;?
     Route: 060
     Dates: start: 20170228, end: 20170328

REACTIONS (2)
  - Blood glucose fluctuation [None]
  - Product dosage form issue [None]

NARRATIVE: CASE EVENT DATE: 20170305
